FAERS Safety Report 18561311 (Version 2)
Quarter: 2023Q4

REPORT INFORMATION
  Report Type: Spontaneous
  Country: US (occurrence: US)
  Receive Date: 20201130
  Receipt Date: 20231120
  Transmission Date: 20240109
  Serious: No
  Sender: FDA-Public Use
  Company Number: US-JNJFOC-20201138328

PATIENT
  Age: 61 Year
  Sex: Female

DRUGS (3)
  1. REMICADE [Suspect]
     Active Substance: INFLIXIMAB
     Indication: Autoimmune colitis
     Route: 041
     Dates: start: 201707
  2. IPILIMUMAB;NIVOLUMAB [Concomitant]
     Dosage: 3 DOSES
     Dates: end: 201706
  3. VEDOLIZUMAB [Concomitant]
     Active Substance: VEDOLIZUMAB
     Dosage: 3 DOSES
     Dates: start: 201709

REACTIONS (2)
  - Off label use [Unknown]
  - Product use in unapproved indication [Unknown]
